FAERS Safety Report 9105208 (Version 2)
Quarter: 2013Q1

REPORT INFORMATION
  Report Type: Spontaneous
  Country: IT (occurrence: IT)
  Receive Date: 20130220
  Receipt Date: 20130225
  Transmission Date: 20140127
  Serious: Yes (Other)
  Sender: FDA-Public Use
  Company Number: IT-BRISTOL-MYERS SQUIBB COMPANY-17372871

PATIENT
  Age: 74 Year
  Sex: Female

DRUGS (7)
  1. COUMADIN TABS 5 MG [Suspect]
     Indication: ATRIAL FIBRILLATION
     Dosage: SUSPENSION FOR 1 DAY?ALSO TAKEN 22.5MG/WK,INTER 05FEB13
     Route: 048
     Dates: start: 20060616
  2. COUMADIN TABS 5 MG [Suspect]
     Indication: CARDIAC VALVE PROSTHESIS USER
     Dosage: SUSPENSION FOR 1 DAY?ALSO TAKEN 22.5MG/WK,INTER 05FEB13
     Route: 048
     Dates: start: 20060616
  3. TACHIPIRINA [Suspect]
     Indication: PYREXIA
     Dosage: PRODUCT STRENGTH IS 500 MG TABLETS^
     Route: 048
     Dates: start: 20130110, end: 20130113
  4. LEVOXACIN [Suspect]
     Indication: PNEUMONIA
     Route: 048
     Dates: start: 20130110, end: 20130113
  5. PANTOPRAZOLE SODIUM [Concomitant]
     Dosage: PANTOPRAZOLE SODIUM SESQUIHYDRATE
     Route: 048
  6. SIVASTIN [Concomitant]
     Route: 048
  7. LASIX [Concomitant]
     Route: 048
     Dates: start: 20121109, end: 20130113

REACTIONS (2)
  - Pneumonia [Unknown]
  - International normalised ratio increased [Recovered/Resolved]
